FAERS Safety Report 18257674 (Version 1)
Quarter: 2020Q3

REPORT INFORMATION
  Report Type: Spontaneous
  Country: US (occurrence: US)
  Receive Date: 20200911
  Receipt Date: 20200911
  Transmission Date: 20201103
  Serious: Yes (Other)
  Sender: FDA-Public Use
  Company Number: US-SPECGX-T202001661

PATIENT
  Age: 40 Year
  Sex: Female
  Weight: 57 kg

DRUGS (10)
  1. CAMPRAL [Concomitant]
     Active Substance: ACAMPROSATE CALCIUM
     Indication: ALCOHOLISM
     Dosage: 666 MILLIGRAM, TID (333MG, TWO TABLETS THREE TIMES A DAY)
     Route: 048
  2. SINGULAIR [Concomitant]
     Active Substance: MONTELUKAST SODIUM
     Indication: ASTHMA
     Dosage: 10 MILLIGRAM, QD (IN THE MORNING)
     Route: 048
  3. DICYCLOMINE [Concomitant]
     Active Substance: DICYCLOMINE HYDROCHLORIDE
     Indication: PRODUCT USED FOR UNKNOWN INDICATION
     Dosage: 20 MILLIGRAM, Q6H
     Route: 048
  4. KRATOM [Concomitant]
     Active Substance: HERBALS\MITRAGYNINE
     Indication: PAIN
     Dosage: UNK
     Route: 048
  5. SUBOXONE [Concomitant]
     Active Substance: BUPRENORPHINE HYDROCHLORIDE\NALOXONE HYDROCHLORIDE
     Indication: ALCOHOL WITHDRAWAL SYNDROME
     Dosage: 0.125 MILLIGRAM
     Route: 048
     Dates: start: 20200813
  6. CLONIDINE. [Concomitant]
     Active Substance: CLONIDINE
     Indication: DETOXIFICATION
     Dosage: UNK
     Route: 048
  7. KLONOPIN [Concomitant]
     Active Substance: CLONAZEPAM
     Indication: SLEEP DISORDER
     Dosage: 2 MILLIGRAM, TID
     Route: 048
  8. NALTREXONE [Suspect]
     Active Substance: NALTREXONE
     Indication: ALCOHOLISM
     Dosage: 50 MILLIGRAM, BID
     Route: 048
     Dates: start: 20200824
  9. NEURONTIN [Concomitant]
     Active Substance: GABAPENTIN
     Indication: SCIATICA
     Dosage: 800 MILLIGRAM, QID
     Route: 048
  10. PROVANOL [Concomitant]
     Indication: PRODUCT USED FOR UNKNOWN INDICATION
     Dosage: 20 MILLIGRAM, BID
     Route: 048

REACTIONS (13)
  - Fatigue [Unknown]
  - Suicidal ideation [Unknown]
  - Mental fatigue [Unknown]
  - Insomnia [Unknown]
  - Chest pain [Unknown]
  - Weight decreased [Unknown]
  - Abdominal discomfort [Unknown]
  - Back pain [Unknown]
  - Decreased appetite [Unknown]
  - Major depression [Unknown]
  - Ageusia [Unknown]
  - Asthenia [Unknown]
  - Treatment noncompliance [Unknown]

NARRATIVE: CASE EVENT DATE: 202008
